FAERS Safety Report 6094238-8 (Version None)
Quarter: 2009Q1

REPORT INFORMATION
  Report Type: 
  Country: None (occurrence: None)
  Receive Date: 20090219
  Receipt Date: 20081113
  Transmission Date: 20090719
  Serious: No
  Sender: FDA-Public Use
  Company Number: WAES 0811USA02140

PATIENT
  Age: 46 Year
  Sex: Male

DRUGS (7)
  1. JANUVIA [Suspect]
     Indication: DIABETES MELLITUS
     Dosage: 100 MG/DAILY/PO
     Route: 048
     Dates: start: 20070101
  2. INSULIN [Suspect]
  3. ACTOS [Concomitant]
  4. DIOVAN [Concomitant]
  5. DILTIAZEM HYDROCHLORIDE [Concomitant]
  6. LOVASTATIN [Concomitant]
  7. METFORMIN HCL [Concomitant]

REACTIONS (2)
  - DIZZINESS [None]
  - DRUG INEFFECTIVE [None]
